FAERS Safety Report 5317647-0 (Version None)
Quarter: 2007Q2

REPORT INFORMATION
  Report Type: 
  Country: None (occurrence: None)
  Receive Date: 20070507
  Receipt Date: 20070501
  Transmission Date: 20071010
  Serious: Yes (Hospitalization)
  Sender: FDA-Public Use
  Company Number: US-ASTRAZENECA-2007UW09320

PATIENT
  Age: 80 Year
  Sex: Male
  Weight: 86.2 kg

DRUGS (8)
  1. NEXIUM [Suspect]
     Indication: GASTROOESOPHAGEAL REFLUX DISEASE
     Route: 048
     Dates: start: 20020101, end: 20070101
  2. NEXIUM [Suspect]
     Route: 048
     Dates: start: 20070401
  3. PREDNISONE TAB [Concomitant]
  4. SOTALOL HYDROCHLORIDE [Concomitant]
  5. LIPITOR [Concomitant]
  6. MAVIK [Concomitant]
  7. MAXZIDE [Concomitant]
  8. POLYETHYLINE GLYCOL [Concomitant]

REACTIONS (3)
  - ERUCTATION [None]
  - FAECAL INCONTINENCE [None]
  - GASTROOESOPHAGEAL REFLUX DISEASE [None]
